FAERS Safety Report 7829924-X (Version None)
Quarter: 2011Q4

REPORT INFORMATION
  Report Type: 
  Country: None (occurrence: None)
  Receive Date: 20111021
  Receipt Date: 20110928
  Transmission Date: 20120403
  Serious: Yes (Death, Hospitalization, Other)
  Sender: FDA-Public Use
  Company Number: PL-BAYER-2011-092214

PATIENT
  Age: 17 Year
  Sex: Female

DRUGS (3)
  1. IBUPROFEN [Suspect]
     Dosage: 1 G, ONCE 5 X 200 MG
  2. NAPROXEN SODIUM [Suspect]
     Dosage: 7.5 G, ONCE 15 X 500 MG
  3. ASCORBIC ACID + FERROUS SULFATE + FOLIC ACID [Suspect]
     Dosage: 50 DF, ONCE 320 MG IRON SULPHATE + 50 MG ASCORBIC ACID PER TABLET

REACTIONS (21)
  - GASTRIC MUCOSAL LESION [None]
  - PLEURAL HAEMORRHAGE [None]
  - PERITONEAL HAEMORRHAGE [None]
  - CARDIAC ARREST [None]
  - HEPATIC NECROSIS [None]
  - BRONCHOPNEUMONIA [None]
  - PULMONARY HAEMORRHAGE [None]
  - HEPATIC ENCEPHALOPATHY [None]
  - PANCREATITIS ACUTE [None]
  - ENTEROCOLITIS HAEMORRHAGIC [None]
  - HYPOGLYCAEMIA [None]
  - RENAL FAILURE ACUTE [None]
  - SHOCK HAEMORRHAGIC [None]
  - HAEMOSIDEROSIS [None]
  - GASTRITIS HAEMORRHAGIC [None]
  - METABOLIC ACIDOSIS [None]
  - COAGULOPATHY [None]
  - RESPIRATORY FAILURE [None]
  - GASTRIC ULCER [None]
  - ACUTE HEPATIC FAILURE [None]
  - CEREBRAL HAEMORRHAGE [None]
